FAERS Safety Report 7112263-2 (Version None)
Quarter: 2010Q4

REPORT INFORMATION
  Report Type: 
  Country: None (occurrence: None)
  Receive Date: 20101119
  Receipt Date: 20100510
  Transmission Date: 20110411
  Serious: No
  Sender: FDA-Public Use
  Company Number: A0858954A

PATIENT

DRUGS (1)
  1. AVODART [Suspect]
     Dosage: .5CAP UNKNOWN
     Route: 048

REACTIONS (1)
  - LOSS OF LIBIDO [None]
